FAERS Safety Report 4828972-1 (Version None)
Quarter: 2005Q4

REPORT INFORMATION
  Report Type: 
  Country: None (occurrence: None)
  Receive Date: 20051027
  Receipt Date: 20050104
  Transmission Date: 20060501
  Serious: Yes (Hospitalization)
  Sender: FDA-Public Use
  Company Number: HQWYE215217JUL04

PATIENT
  Age: 75 Year
  Sex: Female
  Weight: 45.85 kg

DRUGS (1)
  1. PREMARIN [Suspect]
     Dates: start: 19800101, end: 20010101

REACTIONS (1)
  - BREAST CANCER [None]
